FAERS Safety Report 6610602-X (Version None)
Quarter: 2010Q1

REPORT INFORMATION
  Report Type: 
  Country: None (occurrence: None)
  Receive Date: 20100302
  Receipt Date: 20100218
  Transmission Date: 20100710
  Serious: Yes (Hospitalization, Other)
  Sender: FDA-Public Use
  Company Number: US-PFIZER INC-2010019753

PATIENT
  Sex: Male
  Weight: 113.38 kg

DRUGS (2)
  1. CHANTIX [Suspect]
     Indication: SMOKING CESSATION THERAPY
     Dosage: 0.5 MG, 1X/DAY
     Route: 048
     Dates: start: 20100208, end: 20100212
  2. CHANTIX [Suspect]
     Dosage: 0.5 MG, 2X/DAY
     Dates: end: 20100212

REACTIONS (3)
  - ABNORMAL DREAMS [None]
  - GASTROINTESTINAL HAEMORRHAGE [None]
  - HAEMATOCRIT DECREASED [None]
